FAERS Safety Report 13061323 (Version 2)
Quarter: 2017Q1

REPORT INFORMATION
  Report Type: Spontaneous
  Country: IE (occurrence: IE)
  Receive Date: 20161226
  Receipt Date: 20170118
  Transmission Date: 20170428
  Serious: Yes (Hospitalization)
  Sender: FDA-Public Use
  Company Number: IE-ABBVIE-16K-229-1816281-00

PATIENT
  Sex: Female

DRUGS (1)
  1. HUMIRA [Suspect]
     Active Substance: ADALIMUMAB
     Indication: PSORIASIS
     Route: 058
     Dates: start: 201105, end: 2016

REACTIONS (4)
  - Psoriasis [Unknown]
  - Demyelination [Recovered/Resolved]
  - Balance disorder [Not Recovered/Not Resolved]
  - Neuropsychiatric syndrome [Not Recovered/Not Resolved]
